FAERS Safety Report 17156958 (Version 1)
Quarter: 2019Q4

REPORT INFORMATION
  Report Type: Spontaneous
  Country: GB (occurrence: GB)
  Receive Date: 20191216
  Receipt Date: 20191216
  Transmission Date: 20200122
  Serious: Yes (Other)
  Sender: FDA-Public Use
  Company Number: GB-TEVA-2019-GB-1151900

PATIENT
  Age: 52 Year
  Sex: Female
  Weight: 118 kg

DRUGS (16)
  1. METFORMIN [Concomitant]
     Active Substance: METFORMIN HYDROCHLORIDE
     Dosage: 4 DOSAGE FORMS
     Dates: start: 20180110
  2. OMEPRAZOLE. [Concomitant]
     Active Substance: OMEPRAZOLE
     Dosage: ACID REFLUX. 1 DOSAGE FORMS
     Dates: start: 20180110
  3. COCODAMOL [Concomitant]
     Active Substance: ACETAMINOPHEN\CODEINE PHOSPHATE
     Dosage: TAKE 1 OR 2 4 TIMES PER DAY
     Dates: start: 20180416
  4. SIMVASTATIN. [Concomitant]
     Active Substance: SIMVASTATIN
     Dosage: EACH EVENING 1 DOSAGE FORMS
     Dates: start: 20180110
  5. ISPAGHULA EXTRACT\PSYLLIUM [Concomitant]
     Active Substance: HERBALS\PLANTAGO OVATA SEED\PLANTAGO SEED
     Dosage: 2 DOSAGE FORMS
     Dates: start: 20180227
  6. ULTRABASE [Concomitant]
     Dosage: APPLY TO THE AFFECTED AREAS AS DIRECTED.
     Dates: start: 20180110
  7. HYDROXOCOBALAMIN [Concomitant]
     Active Substance: HYDROXOCOBALAMIN
     Dosage: INJECT AS DIRECTED.
     Dates: start: 20190924, end: 20191022
  8. CITALOPRAM [Concomitant]
     Active Substance: CITALOPRAM HYDROBROMIDE
     Dosage: 1 DOSAGE FORMS
     Dates: start: 20190208
  9. GLUCOSE [Concomitant]
     Active Substance: DEXTROSE
     Dosage: USE AS DIRECTED.
     Dates: start: 20180625
  10. DAPAGLIFLOZIN. [Concomitant]
     Active Substance: DAPAGLIFLOZIN
     Dosage: 1 DOSAGE FORMS
     Dates: start: 20180110
  11. CALCIPOTRIOL [Concomitant]
     Active Substance: CALCIPOTRIENE
     Dosage: 2 DOSAGE FORMS
     Dates: start: 20180110
  12. HUMULIN M3 [Concomitant]
     Active Substance: INSULIN HUMAN
     Dosage: INJECT BY SUBCUTANEOUS INJECTION AS DIRECTED.
     Route: 058
     Dates: start: 20180110
  13. NITROFURANTOIN. [Suspect]
     Active Substance: NITROFURANTOIN
     Dosage: 200 MG
     Dates: start: 20191105, end: 20191112
  14. TIMODINE [Concomitant]
     Dosage: 3 DOSAGE FORMS
     Dates: start: 20190828, end: 20190829
  15. RAMIPRIL. [Concomitant]
     Active Substance: RAMIPRIL
     Dosage: 1 DOSAGE FORMS
     Dates: start: 20180110
  16. ACETYLSALICYLIC ACID [Concomitant]
     Active Substance: ASPIRIN
     Dosage: 1 DOSAGE FORMS
     Dates: start: 20180110

REACTIONS (2)
  - Mouth ulceration [Recovering/Resolving]
  - Malaise [Unknown]

NARRATIVE: CASE EVENT DATE: 20191113
